FAERS Safety Report 5663097-7 (Version None)
Quarter: 2008Q1

REPORT INFORMATION
  Report Type: 
  Country: None (occurrence: None)
  Receive Date: 20080313
  Receipt Date: 20080305
  Transmission Date: 20080703
  Serious: Yes (Other)
  Sender: FDA-Public Use
  Company Number: A0713541A

PATIENT
  Age: 54 Year
  Sex: Male

DRUGS (14)
  1. COMBIVIR [Suspect]
     Indication: HIV INFECTION
     Dosage: 1TAB TWICE PER DAY
     Route: 048
     Dates: start: 20080222
  2. KALETRA [Suspect]
  3. TACROLIMUS [Concomitant]
  4. PREDNISONE TAB [Concomitant]
  5. NEXIUM [Concomitant]
  6. MYCOPHENOLATE MOFETIL [Concomitant]
  7. BACTRIM [Concomitant]
  8. ACYCLOVIR [Concomitant]
  9. CLOTRIMAZOLE [Concomitant]
  10. OSCAL [Concomitant]
  11. VITAMIN [Concomitant]
  12. COLACE [Concomitant]
  13. MAGNESIUM [Concomitant]
  14. ASPIRIN [Concomitant]

REACTIONS (1)
  - HEPATOTOXICITY [None]
